FAERS Safety Report 13110766 (Version 1)
Quarter: 2017Q1

REPORT INFORMATION
  Report Type: Spontaneous
  Country: IT (occurrence: IT)
  Receive Date: 20170112
  Receipt Date: 20170112
  Transmission Date: 20170428
  Serious: Yes (Death)
  Sender: FDA-Public Use
  Company Number: IT-SA-2017SA000913

PATIENT

DRUGS (13)
  1. ANTI-THYMOCYTE GLOBULIN (RABBIT) [Suspect]
     Active Substance: LAPINE T-LYMPHOCYTE IMMUNE GLOBULIN
     Indication: ALLOGENIC BONE MARROW TRANSPLANTATION THERAPY
     Route: 065
  2. FUROSEMIDE. [Concomitant]
     Active Substance: FUROSEMIDE
  3. DEFIBROTIDE [Concomitant]
     Active Substance: DEFIBROTIDE (BOVINE)
  4. ACYCLOVIR. [Concomitant]
     Active Substance: ACYCLOVIR
  5. VANCOMYCIN [Concomitant]
     Active Substance: VANCOMYCIN
  6. CYCLOSPORIN [Concomitant]
     Active Substance: CYCLOSPORINE
  7. FLUDARABINE PHOSPHATE. [Suspect]
     Active Substance: FLUDARABINE PHOSPHATE
     Indication: ALLOGENIC BONE MARROW TRANSPLANTATION THERAPY
     Route: 065
  8. FLUCONAZOLE. [Concomitant]
     Active Substance: FLUCONAZOLE
  9. SODIUM VALPROATE [Concomitant]
     Active Substance: VALPROATE SODIUM
  10. AMPHOTERICIN B. [Concomitant]
     Active Substance: AMPHOTERICIN B
  11. AMIKACIN [Concomitant]
     Active Substance: AMIKACIN
  12. CEFTAZIDIME. [Concomitant]
     Active Substance: CEFTAZIDIME
  13. METHYLPREDNISOLONE. [Concomitant]
     Active Substance: METHYLPREDNISOLONE

REACTIONS (1)
  - Capillary leak syndrome [Fatal]
